FAERS Safety Report 23030668 (Version 1)
Quarter: 2023Q4

REPORT INFORMATION
  Report Type: Report from Study
  Country: AR (occurrence: AR)
  Receive Date: 20231005
  Receipt Date: 20231005
  Transmission Date: 20240110
  Serious: Yes (Death, Other)
  Sender: FDA-Public Use
  Company Number: AR-ABBVIE-5436593

PATIENT
  Age: 71 Year
  Sex: Male

DRUGS (4)
  1. VENCLEXTA [Suspect]
     Active Substance: VENETOCLAX
     Indication: Acute myeloid leukaemia
     Dosage: 28 DAYS WITH 14 DAYS OFF?FIRST CYCLE
     Route: 048
     Dates: start: 202204
  2. VENCLEXTA [Suspect]
     Active Substance: VENETOCLAX
     Indication: Acute myeloid leukaemia
     Dosage: SECOND CYCLE
     Route: 048
     Dates: end: 202206
  3. AZATID [Concomitant]
     Indication: Acute myeloid leukaemia
     Dates: start: 202204, end: 202206
  4. FLUCONAZOLE [Concomitant]
     Active Substance: FLUCONAZOLE
     Indication: Product used for unknown indication
     Dates: start: 202204, end: 202206

REACTIONS (6)
  - Gastrointestinal haemorrhage [Fatal]
  - Pancytopenia [Unknown]
  - Pneumonia [Unknown]
  - Febrile neutropenia [Unknown]
  - Cytopenia [Unknown]
  - Cardio-respiratory arrest [Fatal]

NARRATIVE: CASE EVENT DATE: 20220101
